FAERS Safety Report 6446844-6 (Version None)
Quarter: 2009Q4

REPORT INFORMATION
  Report Type: 
  Country: None (occurrence: None)
  Receive Date: 20091102
  Receipt Date: 20080829
  Transmission Date: 20100525
  Serious: Yes (Other)
  Sender: FDA-Public Use
  Company Number: AEITA200800199

PATIENT
  Age: 35 Year

DRUGS (3)
  1. IGIV  (IMMUNE GLOBULIN IV (HUMAN),  CAPRYLATE/CHROMATOGRAPHY PURIFIED) [Suspect]
     Indication: IMMUNODEFICIENCY COMMON VARIABLE
     Dosage: ; IV
     Route: 042
  2. CORTICOSTEROIDS NOS [Concomitant]
  3. ANTIHISTAMINES [Concomitant]

REACTIONS (4)
  - CHILLS [None]
  - HYPOTENSION [None]
  - NAUSEA [None]
  - PYREXIA [None]
